FAERS Safety Report 19826772 (Version 1)
Quarter: 2021Q3

REPORT INFORMATION
  Report Type: Spontaneous
  Country: US (occurrence: US)
  Receive Date: 20210913
  Receipt Date: 20210913
  Transmission Date: 20211014
  Serious: No
  Sender: FDA-Public Use
  Company Number: US-INTERNATIONAL MEDICATION SYSTEMS, LIMITED-2118320

PATIENT
  Age: 78 Year
  Sex: Male
  Weight: 67.27 kg

DRUGS (1)
  1. PROCAINAMIDE HYDROCHLORIDE. [Suspect]
     Active Substance: PROCAINAMIDE HYDROCHLORIDE
     Indication: NERVE BLOCK
     Dates: start: 20210406, end: 20210406

REACTIONS (2)
  - Injection site vesicles [Unknown]
  - Pain in extremity [Unknown]
